FAERS Safety Report 12364890 (Version 2)
Quarter: 2016Q2

REPORT INFORMATION
  Report Type: Spontaneous
  Country: US (occurrence: US)
  Receive Date: 20160512
  Receipt Date: 20160611
  Transmission Date: 20160815
  Serious: No
  Sender: FDA-Public Use
  Company Number: US-009507513-1605USA005719

PATIENT

DRUGS (1)
  1. CELESTONE [Suspect]
     Active Substance: BETAMETHASONE
     Route: 064

REACTIONS (3)
  - Foetal exposure during pregnancy [Unknown]
  - Blood cortisol abnormal [Unknown]
  - Cerebral disorder [Unknown]
